FAERS Safety Report 5797192-9 (Version None)
Quarter: 2008Q2

REPORT INFORMATION
  Report Type: 
  Country: None (occurrence: None)
  Receive Date: 20080627
  Receipt Date: 20080612
  Transmission Date: 20081010
  Serious: Yes (Life-Threatening, Hospitalization)
  Sender: FDA-Public Use
  Company Number: TNZFR200800090

PATIENT
  Age: 78 Year
  Sex: Male
  Weight: 100 kg

DRUGS (3)
  1. INNOHEP [Suspect]
     Indication: THROMBOSIS PROPHYLAXIS
     Dosage: (4500 IU, DAILY), SUBCUTANEOUS
     Route: 058
     Dates: start: 20080409, end: 20080419
  2. HYZAAR [Concomitant]
  3. ACTRAPID (INSULIN HUMAN) [Concomitant]

REACTIONS (10)
  - ADRENAL INSUFFICIENCY [None]
  - AMPUTATION [None]
  - ARTERIAL THROMBOSIS [None]
  - BLOOD LACTIC ACID ABNORMAL [None]
  - EMBOLISM [None]
  - HEPARIN-INDUCED THROMBOCYTOPENIA [None]
  - HEPATIC FAILURE [None]
  - MULTI-ORGAN FAILURE [None]
  - PERIPHERAL ISCHAEMIA [None]
  - RENAL FAILURE [None]
